FAERS Safety Report 24721553 (Version 1)
Quarter: 2024Q4

REPORT INFORMATION
  Report Type: Spontaneous
  Country: US (occurrence: None)
  Receive Date: 20241211
  Receipt Date: 20241211
  Transmission Date: 20250114
  Serious: Yes (Hospitalization)
  Sender: Public
  Company Number: None

PATIENT
  Age: 69 Year
  Sex: Female
  Weight: 50.5 kg

DRUGS (1)
  1. FLOXURIDINE [Suspect]
     Active Substance: FLOXURIDINE
     Dates: end: 20241112

REACTIONS (5)
  - Therapy interrupted [None]
  - Gait inability [None]
  - Cerebellar tumour [None]
  - Metastases to central nervous system [None]
  - Blood alkaline phosphatase increased [None]

NARRATIVE: CASE EVENT DATE: 20241126
